FAERS Safety Report 8062914-3 (Version None)
Quarter: 2012Q1

REPORT INFORMATION
  Report Type: 
  Country: None (occurrence: None)
  Receive Date: 20120123
  Receipt Date: 20120123
  Transmission Date: 20120608
  Serious: Yes (Other)
  Sender: FDA-Public Use
  Company Number: None

PATIENT
  Age: 38 Year
  Sex: Female
  Weight: 81.193 kg

DRUGS (1)
  1. MIRENA [Suspect]
     Indication: CONTRACEPTION
     Dates: start: 20110516, end: 20110908

REACTIONS (9)
  - WEIGHT INCREASED [None]
  - DEVICE DISLOCATION [None]
  - ALOPECIA [None]
  - ACNE [None]
  - UTERINE PERFORATION [None]
  - PROCEDURAL PAIN [None]
  - HEADACHE [None]
  - WEIGHT DECREASED [None]
  - COMPLICATION OF DEVICE INSERTION [None]
